FAERS Safety Report 4522300-7 (Version None)
Quarter: 2004Q4

REPORT INFORMATION
  Report Type: 
  Country: None (occurrence: None)
  Receive Date: 20041207
  Receipt Date: 20041118
  Transmission Date: 20050328
  Serious: Yes (Hospitalization)
  Sender: FDA-Public Use
  Company Number: US_0411108266

PATIENT
  Age: 41 Year
  Sex: Male
  Weight: 70 kg

DRUGS (7)
  1. DULOXETINE HYDROCHLORIDE [Suspect]
     Indication: MAJOR DEPRESSION
     Dosage: 60 MG DAY
     Dates: start: 20041104, end: 20041117
  2. ZYPREXA [Concomitant]
  3. LAMICTAL [Concomitant]
  4. AMBIEN [Concomitant]
  5. ENTEX CAP [Concomitant]
  6. NASACORT AQ (TRIAMCINOLONE ACETONIDE) [Concomitant]
  7. NAPROSYN (NAPROXEN MEPHA) [Concomitant]

REACTIONS (5)
  - ANXIETY [None]
  - CHEST PAIN [None]
  - MYALGIA [None]
  - PAIN IN EXTREMITY [None]
  - PAIN IN JAW [None]
